FAERS Safety Report 13339125 (Version 1)
Quarter: 2017Q1

REPORT INFORMATION
  Report Type: Report from Study
  Country: IN (occurrence: IN)
  Receive Date: 20170315
  Receipt Date: 20170315
  Transmission Date: 20170428
  Serious: Yes (Other)
  Sender: FDA-Public Use
  Company Number: IN-TORRENT-00000969

PATIENT

DRUGS (2)
  1. AMLODIPINE [Suspect]
     Active Substance: AMLODIPINE BESYLATE
  2. PHYLLANTHUS AMARUS [Suspect]
     Active Substance: PHYLLANTHUS AMARUS FRUIT

REACTIONS (1)
  - Toxic epidermal necrolysis [Unknown]
